FAERS Safety Report 17968074 (Version 1)
Quarter: 2020Q3

REPORT INFORMATION
  Report Type: Spontaneous
  Country: GB (occurrence: GB)
  Receive Date: 20200701
  Receipt Date: 20200701
  Transmission Date: 20201103
  Serious: Yes (Hospitalization)
  Sender: FDA-Public Use
  Company Number: GB-PFIZER INC-2020249354

PATIENT
  Age: 61 Year
  Sex: Female
  Weight: 73.93 kg

DRUGS (1)
  1. LUSTRAL [Suspect]
     Active Substance: SERTRALINE HYDROCHLORIDE
     Indication: DEPRESSION
     Dosage: 100 MG, 1X/DAY
     Route: 048
     Dates: start: 20190515

REACTIONS (7)
  - Hair texture abnormal [Unknown]
  - Visual acuity reduced [Unknown]
  - Hypoglycaemia [Unknown]
  - Grip strength decreased [Unknown]
  - Gait disturbance [Not Recovered/Not Resolved]
  - Asthenia [Unknown]
  - Dysgraphia [Unknown]

NARRATIVE: CASE EVENT DATE: 202006
